FAERS Safety Report 5001744-3 (Version None)
Quarter: 2006Q2

REPORT INFORMATION
  Report Type: 
  Country: None (occurrence: None)
  Receive Date: 20060512
  Receipt Date: 20060512
  Transmission Date: 20061013
  Serious: Yes (Hospitalization)
  Sender: FDA-Public Use
  Company Number: None

PATIENT
  Age: 67 Year
  Sex: Male
  Weight: 93.8946 kg

DRUGS (4)
  1. DOCETAXEL [Suspect]
     Indication: CHEMOTHERAPY
     Dosage: 60MG/M2  IV/1HR EVERY3WK
     Route: 042
     Dates: start: 20060412
  2. DOCETAXEL [Suspect]
     Indication: CHEMOTHERAPY
     Dosage: 60MG/M2  IV/1HR EVERY3WK
     Route: 042
     Dates: start: 20060503
  3. GEFITINIB [Suspect]
     Indication: CHEMOTHERAPY
     Dosage: 250MG ORAL DOSE/DAY
     Route: 048
     Dates: start: 20060412
  4. GEFITINIB [Suspect]
     Indication: CHEMOTHERAPY
     Dosage: 250MG ORAL DOSE/DAY
     Route: 048
     Dates: start: 20060503

REACTIONS (4)
  - DEHYDRATION [None]
  - HYPOTENSION [None]
  - NAUSEA [None]
  - VOMITING [None]
